FAERS Safety Report 20156877 (Version 2)
Quarter: 2025Q2

REPORT INFORMATION
  Report Type: Spontaneous
  Country: GB (occurrence: GB)
  Receive Date: 20211207
  Receipt Date: 20250422
  Transmission Date: 20250716
  Serious: Yes (Other)
  Sender: PFIZER
  Company Number: GB-MYLANLABS-2021M1066592

PATIENT
  Age: 55 Year
  Sex: Male
  Weight: 54 kg

DRUGS (21)
  1. RITUXIMAB [Suspect]
     Active Substance: RITUXIMAB
     Indication: Pulmonary vasculitis
     Route: 042
     Dates: start: 202012, end: 20210730
  2. CLOZARIL [Suspect]
     Active Substance: CLOZAPINE
     Indication: Schizoaffective disorder
     Route: 048
     Dates: start: 20161031
  3. CLOZARIL [Suspect]
     Active Substance: CLOZAPINE
     Indication: Schizophrenia
  4. COTRIMOXAZOLE [Suspect]
     Active Substance: SULFAMETHOXAZOLE\TRIMETHOPRIM
     Indication: Pulmonary vasculitis
     Dosage: 480 MG, QD (CONTINUE FOR AT LEAST 2 YEARS)
     Route: 048
     Dates: start: 20201201
  5. CALCIUM CARBONATE\CHOLECALCIFEROL [Concomitant]
     Active Substance: CALCIUM CARBONATE\CHOLECALCIFEROL
     Dosage: 2 DF, 1X/DAY
     Route: 065
     Dates: start: 20210609
  6. ALENDRONIC ACID [Concomitant]
     Active Substance: ALENDRONIC ACID
     Dosage: 70 MG, WEEKLY
     Route: 065
     Dates: start: 20190328
  7. BISOPROLOL [Concomitant]
     Active Substance: BISOPROLOL
     Dosage: 1.25 MG, 1X/DAY
     Route: 065
     Dates: start: 20210217
  8. CLONAZEPAM [Concomitant]
     Active Substance: CLONAZEPAM
     Dosage: 250 UG, 1X/DAY
     Route: 065
     Dates: start: 20210913
  9. FAMOTIDINE [Concomitant]
     Active Substance: FAMOTIDINE
     Dosage: 20 MG, 1X/DAY
     Route: 065
     Dates: start: 20201029
  10. FERROUS FUMARATE [Concomitant]
     Active Substance: FERROUS FUMARATE
     Dosage: 210 MG, 1X/DAY
     Route: 065
     Dates: start: 20200810
  11. FOLIC ACID [Concomitant]
     Active Substance: FOLIC ACID
     Route: 065
  12. GLICLAZIDE [Concomitant]
     Active Substance: GLICLAZIDE
     Dosage: 80 MG, 2X/DAY
     Route: 065
     Dates: start: 20170317
  13. SCOPOLAMINE [Concomitant]
     Active Substance: SCOPOLAMINE
     Dosage: 1 DF, 2X/WEEK
     Route: 065
     Dates: start: 20190523
  14. POLYETHYLENE GLYCOL 3350\POTASSIUM CHLORIDE\SODIUM BICARBONATE\SODIUM [Concomitant]
     Active Substance: POLYETHYLENE GLYCOL 3350\POTASSIUM CHLORIDE\SODIUM BICARBONATE\SODIUM CHLORIDE
     Indication: Product used for unknown indication
     Dosage: UNK, DAILY (1-2 SACHETS DAILY)
     Route: 065
     Dates: start: 20200512
  15. METHOTREXATE [Concomitant]
     Active Substance: METHOTREXATE
     Route: 065
  16. METHOTREXATE [Concomitant]
     Active Substance: METHOTREXATE
     Dosage: 15 MG, QW
     Route: 065
     Dates: start: 20200814
  17. PANTOPRAZOLE [Concomitant]
     Active Substance: PANTOPRAZOLE
     Indication: Product used for unknown indication
     Route: 065
     Dates: start: 20171217
  18. VALPROATE SODIUM [Concomitant]
     Active Substance: VALPROATE SODIUM
     Dosage: 500 MG, 1X/DAY
     Route: 065
     Dates: start: 20211008
  19. PREDNISOLONE [Concomitant]
     Active Substance: PREDNISOLONE
     Dosage: 25 MG, 1X/DAY
  20. PREDNISOLONE [Concomitant]
     Active Substance: PREDNISOLONE
     Dosage: 5 MG, 1X/DAY
     Dates: start: 20210727
  21. PEPTAC [PANTOPRAZOLE] [Concomitant]
     Dates: start: 20171217

REACTIONS (5)
  - Pulmonary vasculitis [Recovering/Resolving]
  - Neutrophil count decreased [Recovered/Resolved]
  - Viral infection [Unknown]
  - White blood cell count decreased [Recovered/Resolved]
  - Haemoglobin decreased [Unknown]

NARRATIVE: CASE EVENT DATE: 20200801
